FAERS Safety Report 7555190-9 (Version None)
Quarter: 2011Q2

REPORT INFORMATION
  Report Type: 
  Country: None (occurrence: None)
  Receive Date: 20110617
  Receipt Date: 20110608
  Transmission Date: 20111010
  Serious: Yes (Hospitalization, Other)
  Sender: FDA-Public Use
  Company Number: PHHY2010US84282

PATIENT
  Sex: Male
  Weight: 17.3 kg

DRUGS (3)
  1. TOBI [Suspect]
     Indication: CYSTIC FIBROSIS
     Dosage: 300 MG, BID (ONE AMPULE 28 DAYS ON AND 28 DAYS OFF)
     Dates: start: 20080619
  2. TOBI [Suspect]
     Dates: start: 20110324
  3. PULMOZYME [Concomitant]
     Dosage: 2.5 MG, QD

REACTIONS (3)
  - LUNG INFECTION [None]
  - UPPER RESPIRATORY TRACT INFECTION [None]
  - INFECTIVE PULMONARY EXACERBATION OF CYSTIC FIBROSIS [None]
